FAERS Safety Report 24770185 (Version 1)
Quarter: 2024Q4

REPORT INFORMATION
  Report Type: Spontaneous
  Country: US (occurrence: None)
  Receive Date: 20241223
  Receipt Date: 20241223
  Transmission Date: 20250115
  Serious: No
  Sender: Public
  Company Number: None

PATIENT
  Age: 43 Year
  Sex: Female
  Weight: 112.94 kg

DRUGS (10)
  1. TASIGNA [Suspect]
     Active Substance: NILOTINIB
     Indication: Chronic myeloid leukaemia
     Dosage: FREQUENCY : TWICE A DAY;?
     Route: 048
     Dates: start: 20241212, end: 20241212
  2. ALLOPURINOL [Concomitant]
     Active Substance: ALLOPURINOL
  3. AMLODIPINE BESYLATE [Concomitant]
     Active Substance: AMLODIPINE BESYLATE
  4. GABAPENTIN [Concomitant]
     Active Substance: GABAPENTIN
  5. HYDROXYUREA [Concomitant]
     Active Substance: HYDROXYUREA
  6. LISINOPRIL [Concomitant]
     Active Substance: LISINOPRIL
  7. NALTREXONE [Concomitant]
     Active Substance: NALTREXONE
  8. OLANZAPINE [Concomitant]
     Active Substance: OLANZAPINE
  9. PAROXETINE [Concomitant]
     Active Substance: PAROXETINE
  10. TOPIRAMATE [Concomitant]
     Active Substance: TOPIRAMATE

REACTIONS (3)
  - Oedema peripheral [None]
  - Swelling face [None]
  - Therapy cessation [None]

NARRATIVE: CASE EVENT DATE: 20241212
